FAERS Safety Report 7945506-3 (Version None)
Quarter: 2011Q4

REPORT INFORMATION
  Report Type: 
  Country: None (occurrence: None)
  Receive Date: 20111129
  Receipt Date: 20111121
  Transmission Date: 20120403
  Serious: Yes (Other)
  Sender: FDA-Public Use
  Company Number: US-PFIZER INC-2011289306

PATIENT
  Sex: Male

DRUGS (3)
  1. VALPROIC ACID [Concomitant]
  2. GABAPENTIN [Suspect]
  3. CARBAMAZEPINE [Concomitant]

REACTIONS (3)
  - MENTAL STATUS CHANGES [None]
  - EUPHORIC MOOD [None]
  - DRUG ABUSE [None]
